FAERS Safety Report 5551892-4 (Version None)
Quarter: 2007Q4

REPORT INFORMATION
  Report Type: 
  Country: None (occurrence: None)
  Receive Date: 20071212
  Receipt Date: 20071203
  Transmission Date: 20080405
  Serious: Yes (Hospitalization)
  Sender: FDA-Public Use
  Company Number: FR-PFIZER INC-2007101982

PATIENT
  Age: 58 Year
  Sex: Female

DRUGS (5)
  1. TAHOR [Suspect]
     Indication: DYSLIPIDAEMIA
  2. SPIRONOLACTONE [Concomitant]
  3. AMLODIPINE [Concomitant]
  4. GLICLAZIDE [Concomitant]
  5. ALL OTHER THERAPEUTIC PRODUCTS [Concomitant]

REACTIONS (1)
  - DRUG HYPERSENSITIVITY [None]
